FAERS Safety Report 7730199-0 (Version None)
Quarter: 2011Q3

REPORT INFORMATION
  Report Type: 
  Country: None (occurrence: None)
  Receive Date: 20110906
  Receipt Date: 20110831
  Transmission Date: 20111222
  Serious: Yes (Other)
  Sender: FDA-Public Use
  Company Number: FR-ROCHE-799976

PATIENT

DRUGS (2)
  1. NAPROXEN [Suspect]
     Route: 065
  2. BACTRIM DS [Suspect]
     Indication: PROSTATITIS
     Route: 065

REACTIONS (2)
  - HEADACHE [None]
  - OCULAR HYPERAEMIA [None]
